FAERS Safety Report 8809638 (Version 1)
Quarter: 2012Q4

REPORT INFORMATION
  Report Type: 
  Country: US (occurrence: US)
  Receive Date: 20120926
  Receipt Date: 20120926
  Transmission Date: 20130627
  Serious: No
  Sender: FDA-Public Use
  Company Number: US-ASTRAZENECA-2012SE70516

PATIENT
  Age: 57 Year
  Sex: Female
  Weight: 61.2 kg

DRUGS (6)
  1. METOPROLOL SUCCINATE [Suspect]
     Indication: BLOOD PRESSURE ABNORMAL
     Route: 048
  2. AVORVASTATIN [Concomitant]
     Indication: BLOOD CHOLESTEROL
  3. CALCIUM [Concomitant]
  4. CLONAZEPAM [Concomitant]
     Indication: RESTLESS LEGS SYNDROME
  5. MIRTAZAPINE [Concomitant]
     Indication: SLEEP DISORDER
  6. WELLBUTRIN [Concomitant]

REACTIONS (3)
  - Blood pressure fluctuation [Unknown]
  - Hypoaesthesia [Unknown]
  - Hypoaesthesia [Unknown]
